FAERS Safety Report 13043000 (Version 2)
Quarter: 2017Q3

REPORT INFORMATION
  Report Type: Report from Study
  Country: None (occurrence: US)
  Receive Date: 20161219
  Receipt Date: 20170912
  Transmission Date: 20171127
  Serious: Yes (Other)
  Sender: FDA-Public Use
  Company Number: US-ABBVIE-16K-163-1808053-00

PATIENT
  Age: 70 Year
  Sex: Female

DRUGS (1)
  1. HUMIRA [Suspect]
     Active Substance: ADALIMUMAB
     Indication: CROHN^S DISEASE
     Route: 058

REACTIONS (5)
  - Constipation [Unknown]
  - Large intestinal stenosis [Unknown]
  - Urinary incontinence [Unknown]
  - Anal incontinence [Unknown]
  - Colostomy [Unknown]

NARRATIVE: CASE EVENT DATE: 201701
